FAERS Safety Report 4843851-1 (Version None)
Quarter: 2005Q4

REPORT INFORMATION
  Report Type: 
  Country: None (occurrence: None)
  Receive Date: 20051130
  Receipt Date: 20051130
  Transmission Date: 20060501
  Serious: Yes (Life-Threatening, Hospitalization, Disabling, Other)
  Sender: FDA-Public Use
  Company Number: None

PATIENT
  Age: 65 Year
  Sex: Male
  Weight: 78.2455 kg

DRUGS (9)
  1. AVASTIN 4/27, 5/11, 6/1, 6/15 OUTSIDE HOSPITAL [Suspect]
     Indication: COLORECTAL CANCER METASTATIC
     Dates: start: 20040427
  2. AVASTIN 4/27, 5/11, 6/1, 6/15 OUTSIDE HOSPITAL [Suspect]
     Indication: COLORECTAL CANCER METASTATIC
     Dates: start: 20040511
  3. AVASTIN 4/27, 5/11, 6/1, 6/15 OUTSIDE HOSPITAL [Suspect]
     Indication: COLORECTAL CANCER METASTATIC
     Dates: start: 20040601
  4. AVASTIN 4/27, 5/11, 6/1, 6/15 OUTSIDE HOSPITAL [Suspect]
     Indication: COLORECTAL CANCER METASTATIC
     Dates: start: 20040615
  5. COUMADIN [Suspect]
     Indication: ATRIAL FIBRILLATION
  6. COUMADIN [Suspect]
     Indication: CEREBROVASCULAR ACCIDENT PROPHYLAXIS
  7. DIGOXIN [Concomitant]
  8. INDERAL [Concomitant]
  9. HUMULIN 70/30 [Concomitant]

REACTIONS (2)
  - APHASIA [None]
  - CEREBROVASCULAR ACCIDENT [None]
